FAERS Safety Report 9681324 (Version 1)
Quarter: 2013Q4

REPORT INFORMATION
  Report Type: Report from Study
  Country: US (occurrence: US)
  Receive Date: 20131111
  Receipt Date: 20131111
  Transmission Date: 20140711
  Serious: Yes (Other)
  Sender: FDA-Public Use
  Company Number: US-ABBVIE-13P-163-1166632-00

PATIENT
  Sex: Female
  Weight: 113.5 kg

DRUGS (13)
  1. HUMIRA [Suspect]
     Indication: RHEUMATOID ARTHRITIS
     Dates: start: 2008, end: 2012
  2. HUMIRA [Suspect]
     Indication: PSORIASIS
  3. METHOTREXATE [Suspect]
     Indication: RHEUMATOID ARTHRITIS
  4. METHOTREXATE [Suspect]
     Indication: PSORIASIS
  5. METFORMIN [Concomitant]
     Indication: DIABETES MELLITUS
  6. GLIPIZIDE [Concomitant]
     Indication: DIABETES MELLITUS
  7. LEVOTHYROXINE [Concomitant]
     Indication: HYPOTHYROIDISM
  8. TRAMADOL [Concomitant]
     Indication: PAIN
  9. METOPROLOL [Concomitant]
     Indication: HYPERTENSION
  10. VESICARE [Concomitant]
     Indication: URINE ANALYSIS
  11. FLUTICASONE [Concomitant]
     Indication: HYPERSENSITIVITY
  12. OMEGA 3 [Concomitant]
     Indication: VITAMIN SUPPLEMENTATION
  13. VOLTAREN [Concomitant]
     Indication: ARTHRALGIA

REACTIONS (1)
  - Hepatic enzyme increased [Recovering/Resolving]
